FAERS Safety Report 5857392-6 (Version None)
Quarter: 2008Q3

REPORT INFORMATION
  Report Type: 
  Country: None (occurrence: None)
  Receive Date: 20080825
  Receipt Date: 20080825
  Transmission Date: 20090109
  Serious: Yes (Other)
  Sender: FDA-Public Use
  Company Number: None

PATIENT
  Age: 15 Year
  Sex: Female
  Weight: 81.6475 kg

DRUGS (4)
  1. PLAQUENIL [Suspect]
     Indication: CONNECTIVE TISSUE DISORDER
     Dosage: 200 MG BID
     Dates: start: 19990101, end: 20020101
  2. CELEBREX [Concomitant]
  3. LYRICA [Concomitant]
  4. LEXAPRO [Concomitant]

REACTIONS (3)
  - DRUG INTOLERANCE [None]
  - GASTROINTESTINAL DISORDER [None]
  - PHARMACEUTICAL PRODUCT COMPLAINT [None]
